FAERS Safety Report 25102079 (Version 1)
Quarter: 2025Q1

REPORT INFORMATION
  Report Type: Spontaneous
  Country: ID (occurrence: ID)
  Receive Date: 20250320
  Receipt Date: 20250320
  Transmission Date: 20250408
  Serious: Yes (Other)
  Sender: PHARMACEUTICAL ASSOC
  Company Number: ID-PAIPHARMA-2025-ID-000003

PATIENT
  Age: 70 Year
  Sex: Male

DRUGS (6)
  1. VALPROIC ACID [Suspect]
     Active Substance: VALPROIC ACID
     Indication: Seizure
  2. WARFARIN [Suspect]
     Active Substance: WARFARIN
     Indication: Cerebrovascular accident prophylaxis
  3. PHENYTOIN [Concomitant]
     Active Substance: PHENYTOIN
     Route: 042
  4. DIAZEPAM [Concomitant]
     Active Substance: DIAZEPAM
     Route: 042
  5. BISOPROLOL [Concomitant]
     Active Substance: BISOPROLOL
     Route: 048
  6. ISOSORBIDE MONONITRATE [Concomitant]
     Active Substance: ISOSORBIDE MONONITRATE
     Route: 048

REACTIONS (2)
  - Drug interaction [Unknown]
  - Conjunctival haemorrhage [Unknown]
